FAERS Safety Report 24963189 (Version 1)
Quarter: 2025Q1

REPORT INFORMATION
  Report Type: Spontaneous
  Country: US (occurrence: US)
  Receive Date: 20250213
  Receipt Date: 20250213
  Transmission Date: 20250409
  Serious: No
  Sender: ELI LILLY AND COMPANY
  Company Number: US-ELI_LILLY_AND_COMPANY-US202501019276

PATIENT
  Age: 87 Year
  Sex: Female

DRUGS (7)
  1. FORTEO [Suspect]
     Active Substance: TERIPARATIDE
     Indication: Product used for unknown indication
     Route: 065
     Dates: start: 2003, end: 2005
  2. FORTEO [Suspect]
     Active Substance: TERIPARATIDE
     Indication: Product used for unknown indication
     Route: 065
     Dates: start: 2003, end: 2005
  3. FORTEO [Suspect]
     Active Substance: TERIPARATIDE
     Indication: Product used for unknown indication
     Route: 065
     Dates: start: 2003, end: 2005
  4. FORTEO [Suspect]
     Active Substance: TERIPARATIDE
     Route: 065
     Dates: start: 20250117
  5. FORTEO [Suspect]
     Active Substance: TERIPARATIDE
     Route: 065
     Dates: start: 20250117
  6. FORTEO [Suspect]
     Active Substance: TERIPARATIDE
     Route: 065
     Dates: start: 20250117
  7. PROLIA [Concomitant]
     Active Substance: DENOSUMAB
     Indication: Product used for unknown indication
     Route: 065

REACTIONS (2)
  - Drug dose omission by device [Unknown]
  - Drug ineffective [Unknown]
